FAERS Safety Report 8058212-4 (Version None)
Quarter: 2012Q1

REPORT INFORMATION
  Report Type: 
  Country: None (occurrence: None)
  Receive Date: 20120112
  Receipt Date: 20120105
  Transmission Date: 20120608
  Serious: Yes (Other)
  Sender: FDA-Public Use
  Company Number: 2012SP000927

PATIENT
  Age: 23 Year
  Sex: Female

DRUGS (3)
  1. DESLORATADINE [Suspect]
     Indication: PRODUCT USED FOR UNKNOWN INDICATION
     Dosage: PO
     Route: 048
  2. DIHYDROERGOTAMINE MESYLATE [Suspect]
     Indication: PRODUCT USED FOR UNKNOWN INDICATION
     Dosage: PO
     Route: 048
  3. AUGMENTIN '125' [Suspect]
     Indication: INFECTION
     Dosage: PO
     Route: 048
     Dates: start: 20060101

REACTIONS (3)
  - TYPE IV HYPERSENSITIVITY REACTION [None]
  - RASH PRURITIC [None]
  - RASH ERYTHEMATOUS [None]
